FAERS Safety Report 10855833 (Version 3)
Quarter: 2015Q1

REPORT INFORMATION
  Report Type: Spontaneous
  Country: US (occurrence: US)
  Receive Date: 20150223
  Receipt Date: 20150325
  Transmission Date: 20150721
  Serious: Yes (Other)
  Sender: FDA-Public Use
  Company Number: CHPA2015US002618

PATIENT
  Age: 56 Year
  Sex: Female

DRUGS (4)
  1. ZZZQUIL NIGHTTIME SLEEP-AID [Suspect]
     Active Substance: DIPHENHYDRAMINE HYDROCHLORIDE
     Indication: PRODUCT USED FOR UNKNOWN INDICATION
     Dosage: UNK
     Route: 065
     Dates: start: 20150212
  2. GAS-X [Suspect]
     Active Substance: DIMETHICONE
     Indication: FLATULENCE
     Dosage: UNK
     Route: 065
  3. GAS-X [Suspect]
     Active Substance: DIMETHICONE
     Indication: FLATULENCE
     Dosage: 360 MG, UNK
     Route: 065
     Dates: start: 20150218, end: 20150218
  4. GAS-X [Suspect]
     Active Substance: DIMETHICONE
     Dosage: 180 UNK, UNK
     Route: 065
     Dates: start: 20150219, end: 20150219

REACTIONS (6)
  - Abdominal pain upper [Recovering/Resolving]
  - Pain in extremity [Recovering/Resolving]
  - Eructation [Recovering/Resolving]
  - Drug ineffective [Recovering/Resolving]
  - Diverticulitis [Not Recovered/Not Resolved]
  - Back pain [Recovering/Resolving]

NARRATIVE: CASE EVENT DATE: 2007
